FAERS Safety Report 9461819 (Version 1)
Quarter: 2013Q3

REPORT INFORMATION
  Report Type: Spontaneous
  Country: US (occurrence: None)
  Receive Date: 20130815
  Receipt Date: 20130815
  Transmission Date: 20140515
  Serious: Yes (Hospitalization)
  Sender: FDA-Public Use
  Company Number: None

PATIENT
  Age: 67 Year
  Sex: Female
  Weight: 72.58 kg

DRUGS (8)
  1. MIRAPEX [Suspect]
     Indication: RESTLESS LEGS SYNDROME
     Dosage: 4 PILL AT 1400, 1 PILL AT BEDT TWICE DAILY TAKEN BY MOUTH
     Route: 048
  2. WELLBUTRIN [Concomitant]
  3. LORATADINE [Concomitant]
  4. PRAMIPEXOLE [Concomitant]
  5. NEXIUM [Concomitant]
  6. CLONAZEPAM [Concomitant]
  7. ATORVASTATIN [Concomitant]
  8. HYDRONCHLOROTHIAZIDE [Concomitant]

REACTIONS (6)
  - Incorrect dose administered [None]
  - Hallucination [None]
  - Blood pressure decreased [None]
  - Oxygen saturation decreased [None]
  - Oedema peripheral [None]
  - Oedema peripheral [None]
